FAERS Safety Report 9070697 (Version 1)
Quarter: 2013Q1

REPORT INFORMATION
  Report Type: Report from Study
  Country: US (occurrence: US)
  Receive Date: 20130129
  Receipt Date: 20130129
  Transmission Date: 20140127
  Serious: No
  Sender: FDA-Public Use
  Company Number: US-ABBOTT-12P-163-0926340-00

PATIENT
  Age: 58 Year
  Sex: Female

DRUGS (21)
  1. HUMIRA 40 MG/0.8 ML PEN [Suspect]
     Indication: COLITIS
     Dates: start: 20120315
  2. HUMIRA 40 MG/0.8 ML PEN [Suspect]
     Indication: DIARRHOEA
  3. HYDROCORTISONE [Concomitant]
     Indication: ADRENAL INSUFFICIENCY
     Dosage: 5 MG, 2 TABS IN AM AND 1 AT NIGHT WITH MEAL
  4. LEVOTHYROXINE [Concomitant]
     Indication: HYPERTHYROIDISM
     Dosage: 150 MCG DAILY
  5. ATENOLOL [Concomitant]
     Indication: HYPERTENSION
     Dosage: 25 MG DAILY
  6. METFORMIN [Concomitant]
     Indication: TYPE 2 DIABETES MELLITUS
     Dosage: 500 MG DAILY
  7. WARFARIN [Concomitant]
     Indication: ANTICOAGULANT THERAPY
     Dosage: 3 MG DAILY
  8. FUROSEMIDE [Concomitant]
     Indication: FLUID RETENTION
     Dosage: 60 MG DAILY
  9. SERTRALINE [Concomitant]
     Indication: ANXIETY
     Dosage: 50 MG DAILY
  10. POTASSIUM CHLORIDE [Concomitant]
     Indication: SUPPLEMENTATION THERAPY
     Dosage: 10 MEQ EXTENDED RELEASE, TWICE DAILY
  11. FOLIC ACID [Concomitant]
     Indication: SUPPLEMENTATION THERAPY
     Dosage: 1 MG DAILY
  12. VITAMIN D3 [Concomitant]
     Indication: SUPPLEMENTATION THERAPY
     Dosage: DAILY
  13. IRON [Concomitant]
     Indication: ANAEMIA
     Dosage: 325 MG DAILY
  14. PLAQUENIL [Concomitant]
     Indication: INFLAMMATION
     Dosage: 200 MG DAILY
  15. ALLEGRA 24 HOUR [Concomitant]
     Indication: HYPERSENSITIVITY
     Dosage: 180 MG DAILY
  16. SUDAFEDRIN [Concomitant]
     Indication: HYPERSENSITIVITY
     Dosage: 30 MG DAILY
  17. BONIVA [Concomitant]
     Indication: OSTEOPOROSIS PROPHYLAXIS
     Dosage: MONTHLY
  18. CALTRATE 600 WITH VITAMIN D [Concomitant]
     Indication: SUPPLEMENTATION THERAPY
  19. SOY SUPPLEMENT [Concomitant]
     Indication: MENOPAUSE
  20. TRAMADOL [Concomitant]
     Indication: PAIN
  21. HYDROCORT INJECTABLE [Concomitant]
     Indication: PRODUCT USED FOR UNKNOWN INDICATION
     Dosage: AS REQUIRED, WHEN CAN NOT TAKE ORAL MEDICATION

REACTIONS (2)
  - Musculoskeletal stiffness [Not Recovered/Not Resolved]
  - Pain [Not Recovered/Not Resolved]
